FAERS Safety Report 6506114-4 (Version None)
Quarter: 2009Q4

REPORT INFORMATION
  Report Type: 
  Country: None (occurrence: None)
  Receive Date: 20091217
  Receipt Date: 20091217
  Transmission Date: 20100525
  Serious: Yes (Other)
  Sender: FDA-Public Use
  Company Number: None

PATIENT
  Age: 51 Year
  Sex: Female
  Weight: 60.782 kg

DRUGS (3)
  1. PRISTIQ [Suspect]
     Indication: ANXIETY
     Dosage: 1 TABLET ONCE PER DAY PO
     Route: 048
     Dates: start: 20091101, end: 20091216
  2. PRISTIQ [Suspect]
     Indication: DEPRESSION
     Dosage: 1 TABLET ONCE PER DAY PO
     Route: 048
     Dates: start: 20091101, end: 20091216
  3. PRISTIQ [Suspect]
     Indication: FIBROMYALGIA
     Dosage: 1 TABLET ONCE PER DAY PO
     Route: 048
     Dates: start: 20091101, end: 20091216

REACTIONS (2)
  - GENITAL HERPES [None]
  - HERPES ZOSTER [None]
